FAERS Safety Report 6785940-0 (Version None)
Quarter: 2010Q2

REPORT INFORMATION
  Report Type: 
  Country: None (occurrence: None)
  Receive Date: 20100622
  Receipt Date: 20100622
  Transmission Date: 20101027
  Serious: Yes (Life-Threatening)
  Sender: FDA-Public Use
  Company Number: None

PATIENT
  Age: 71 Year
  Sex: Male
  Weight: 124.3 kg

DRUGS (1)
  1. NEUMEGA [Suspect]

REACTIONS (5)
  - HYPOXIA [None]
  - PLEURAL EFFUSION [None]
  - PULMONARY EMBOLISM [None]
  - PULMONARY OEDEMA [None]
  - PULSE ABSENT [None]
